FAERS Safety Report 8820382 (Version 3)
Quarter: 2012Q4

REPORT INFORMATION
  Report Type: 
  Country: US (occurrence: US)
  Receive Date: 20121002
  Receipt Date: 20121018
  Transmission Date: 20130627
  Serious: No
  Sender: FDA-Public Use
  Company Number: US-BAYER-2012-101207

PATIENT
  Age: 54 Year

DRUGS (1)
  1. GADAVIST [Suspect]
     Indication: NUCLEAR MAGNETIC RESONANCE IMAGING ABDOMINAL
     Dosage: 7 ml, ONCE
     Dates: start: 20120831, end: 20120831

REACTIONS (2)
  - Nausea [None]
  - Vomiting [None]
